FAERS Safety Report 5595063-4 (Version None)
Quarter: 2008Q1

REPORT INFORMATION
  Report Type: 
  Country: None (occurrence: None)
  Receive Date: 20080117
  Receipt Date: 20080107
  Transmission Date: 20080703
  Serious: Yes (Other)
  Sender: FDA-Public Use
  Company Number: US-GENENTECH-253953

PATIENT
  Sex: Male

DRUGS (4)
  1. NUTROPIN [Suspect]
     Indication: DRUG USE FOR UNKNOWN INDICATION
     Dosage: 1.4 MG, QD
     Dates: start: 20060301
  2. NUTROPIN [Suspect]
     Dosage: 1.5 UNK, UNK
     Dates: start: 20061201
  3. NUTROPIN [Suspect]
     Dosage: 1.6 MG, UNK
     Dates: start: 20070401
  4. NUTROPIN [Suspect]
     Dosage: 1.8 MG, UNK
     Dates: start: 20070801

REACTIONS (1)
  - NEOPLASM PROGRESSION [None]
